FAERS Safety Report 8923581 (Version 1)
Quarter: 2012Q4

REPORT INFORMATION
  Report Type: 
  Country: CH (occurrence: CH)
  Receive Date: 20121123
  Receipt Date: 20121123
  Transmission Date: 20130627
  Serious: Yes (Death)
  Sender: FDA-Public Use
  Company Number: CH-SANOFI-AVENTIS-2012SA084054

PATIENT
  Sex: Female

DRUGS (13)
  1. CLOPIDOGREL BISULFATE [Suspect]
     Indication: DRUG USE FOR UNKNOWN INDICATION
     Dosage: duration of use long term
     Route: 048
     Dates: start: 2011, end: 20120604
  2. AMOXICILLIN SODIUM/CLAVULANATE POTASSIUM [Suspect]
     Indication: DRUG USE FOR UNKNOWN INDICATION
     Route: 041
     Dates: start: 20120515, end: 20120519
  3. ESOMEPRAZOLE MAGNESIUM [Suspect]
     Indication: DRUG USE FOR UNKNOWN INDICATION
     Dosage: duration of use long term
     Route: 048
     Dates: start: 2011, end: 20120604
  4. METOLAZONE [Concomitant]
     Route: 048
     Dates: start: 20120515, end: 20120519
  5. METOLAZONE [Concomitant]
     Dates: start: 20120522, end: 20120530
  6. LASIX [Concomitant]
     Dosage: sous pompe I.V.
     Route: 041
     Dates: start: 20120514
  7. BELOC ZOK [Concomitant]
  8. TORASEMIDE [Concomitant]
     Route: 048
  9. NITRODERM [Concomitant]
     Route: 003
  10. IMOVANE [Concomitant]
     Route: 048
  11. TEMESTA [Concomitant]
  12. IMPORTAL [Concomitant]
  13. DAFALGAN [Concomitant]

REACTIONS (6)
  - Myocardial ischaemia [Fatal]
  - Respiratory failure [Fatal]
  - Drug ineffective [Fatal]
  - Drug interaction [Fatal]
  - Renal failure acute [Fatal]
  - Rash maculo-papular [Recovered/Resolved]
